FAERS Safety Report 25011772 (Version 1)
Quarter: 2025Q1

REPORT INFORMATION
  Report Type: Report from Study
  Country: US (occurrence: US)
  Receive Date: 20250226
  Receipt Date: 20250226
  Transmission Date: 20250408
  Serious: Yes (Other)
  Sender: CSL BEHRING
  Company Number: US-BEH-2024189013

PATIENT
  Age: 83 Year
  Sex: Male
  Weight: 72 kg

DRUGS (3)
  1. HIZENTRA [Suspect]
     Active Substance: HUMAN IMMUNOGLOBULIN G
     Indication: Product used for unknown indication
     Route: 065
     Dates: start: 202412
  2. HIZENTRA [Suspect]
     Active Substance: HUMAN IMMUNOGLOBULIN G
     Route: 065
  3. FLOMAX [Suspect]
     Active Substance: TAMSULOSIN HYDROCHLORIDE
     Indication: Product used for unknown indication
     Route: 065
     Dates: start: 202412

REACTIONS (7)
  - Hypotension [Recovering/Resolving]
  - Atrial fibrillation [Recovering/Resolving]
  - Dysstasia [Unknown]
  - Pruritus [Recovering/Resolving]
  - Fatigue [Recovering/Resolving]
  - Muscle strain [Recovering/Resolving]
  - Heart rate increased [Recovering/Resolving]
